FAERS Safety Report 8986994 (Version 1)
Quarter: 2012Q4

REPORT INFORMATION
  Report Type: Spontaneous
  Country: US (occurrence: None)
  Receive Date: 20121217
  Receipt Date: 20121217
  Transmission Date: 20130627
  Serious: Yes (Hospitalization, Other)
  Sender: FDA-Public Use
  Company Number: DSU-2012-09773

PATIENT
  Age: 80 Year
  Sex: Female
  Weight: 37.2 kg

DRUGS (3)
  1. AZOR [Suspect]
     Indication: HYPERTENSION
     Route: 048
     Dates: start: 2011, end: 2012
  2. TYLENOL 3 (CODEINE PHOSPHATE, PARACETAMOL) [Concomitant]
  3. XANAX (ALPRAZOLAM) [Concomitant]

REACTIONS (6)
  - Blood pressure increased [None]
  - Loss of consciousness [None]
  - Pneumonia [None]
  - Dehydration [None]
  - Malnutrition [None]
  - Hypotension [None]
